FAERS Safety Report 7534038-2 (Version None)
Quarter: 2011Q2

REPORT INFORMATION
  Report Type: 
  Country: None (occurrence: None)
  Receive Date: 20110608
  Receipt Date: 20060927
  Transmission Date: 20111010
  Serious: Yes (Death)
  Sender: FDA-Public Use
  Company Number: PHFR2006GB02796

PATIENT
  Sex: Male

DRUGS (1)
  1. CLOZAPINE [Suspect]
     Indication: SCHIZOPHRENIA
     Dosage: 625MG DAILY
     Route: 048
     Dates: start: 19960501, end: 20060101

REACTIONS (3)
  - CHEST PAIN [None]
  - CONGESTIVE CARDIOMYOPATHY [None]
  - DYSPNOEA [None]
